FAERS Safety Report 16211939 (Version 1)
Quarter: 2019Q2

REPORT INFORMATION
  Report Type: Spontaneous
  Country: US (occurrence: US)
  Receive Date: 20190418
  Receipt Date: 20190418
  Transmission Date: 20190711
  Serious: Yes (Other)
  Sender: FDA-Public Use
  Company Number: US-AUROBINDO-AUR-APL-2019-020972

PATIENT

DRUGS (8)
  1. FENTANYL. [Suspect]
     Active Substance: FENTANYL
     Indication: PAIN MANAGEMENT
     Dosage: 50 MICROGRAM 2 MINUTES  AFTER EXTUBATION
     Route: 042
  2. BUPIVACAINE HYDROCHLORIDE 0.25% (2.5 MG/ML) [Suspect]
     Active Substance: BUPIVACAINE HYDROCHLORIDE
     Indication: MAINTENANCE OF ANAESTHESIA
     Dosage: UNK
     Route: 042
  3. KETOROLAC [Concomitant]
     Active Substance: KETOROLAC\KETOROLAC TROMETHAMINE
     Indication: PAIN MANAGEMENT
     Dosage: 15 MILLIGRAM
     Route: 042
  4. FENTANYL. [Suspect]
     Active Substance: FENTANYL
     Indication: MAINTENANCE OF ANAESTHESIA
     Dosage: 25 MICROGRAM WAS EXTUBATED 11 MIN LATER
     Route: 042
  5. BUPIVACAINE. [Suspect]
     Active Substance: BUPIVACAINE
     Indication: MAINTENANCE OF ANAESTHESIA
     Dosage: 20 ML OF 1.3% LIPOSOMAL BUPIVACAINE.
     Route: 042
  6. FENTANYL. [Suspect]
     Active Substance: FENTANYL
     Dosage: UNK FOUR 25-!LG FENTANYL BOLUSES IV OVER 20 MIN FOR PAIN
     Route: 040
  7. BUPIVACAINE. [Suspect]
     Active Substance: BUPIVACAINE
     Dosage: 25 ML OF THE MIXTURE WAS INJECTED
     Route: 042
  8. FENTANYL. [Suspect]
     Active Substance: FENTANYL
     Dosage: 175 MICROGRAM DURING THE 3-HOUR 22 MIN SURGERY
     Route: 042

REACTIONS (4)
  - Blood pressure increased [Recovering/Resolving]
  - Respiratory acidosis [Recovering/Resolving]
  - Respiratory depression [Recovering/Resolving]
  - Overdose [Recovering/Resolving]
